FAERS Safety Report 19583063 (Version 1)
Quarter: 2021Q3

REPORT INFORMATION
  Report Type: Spontaneous
  Country: US (occurrence: US)
  Receive Date: 20210719
  Receipt Date: 20210719
  Transmission Date: 20211014
  Serious: Yes (Hospitalization)
  Sender: FDA-Public Use
  Company Number: None

PATIENT
  Age: 68 Year
  Sex: Female
  Weight: 76.7 kg

DRUGS (1)
  1. BREYANZI [Suspect]
     Active Substance: LISOCABTAGENE MARALEUCEL

REACTIONS (11)
  - Memory impairment [None]
  - Aphasia [None]
  - Confusional state [None]
  - Encephalopathy [None]
  - Hypotension [None]
  - C-reactive protein increased [None]
  - Serum ferritin increased [None]
  - Somnolence [None]
  - Hallucination [None]
  - Cytokine release syndrome [None]
  - Neurotoxicity [None]

NARRATIVE: CASE EVENT DATE: 20210612
